FAERS Safety Report 9161252 (Version 1)
Quarter: 2013Q1

REPORT INFORMATION
  Report Type: Report from Study
  Country: US (occurrence: US)
  Receive Date: 20130313
  Receipt Date: 20130313
  Transmission Date: 20140127
  Serious: No
  Sender: FDA-Public Use
  Company Number: US-009507513-1303USA005896

PATIENT
  Sex: Female

DRUGS (5)
  1. BOCEPREVIR [Suspect]
     Indication: HEPATITIS C
     Dosage: UNK UNK, TID
     Dates: start: 20120208
  2. RIBAVIRIN [Suspect]
     Indication: HEPATITIS C
     Dosage: 800 MG, QD
     Route: 048
     Dates: start: 20120111
  3. RIBAVIRIN [Suspect]
     Dosage: 400 MG, QD
     Route: 048
  4. PEGINTERFERON ALFA-2A [Suspect]
     Indication: HEPATITIS C
     Dosage: 180 MICROGRAM, QW
     Route: 058
     Dates: start: 20120111
  5. TYLENOL [Concomitant]
     Indication: PYREXIA
     Dosage: 500 MG, PRN
     Route: 048

REACTIONS (14)
  - Abdominal pain upper [Unknown]
  - Influenza like illness [Unknown]
  - Visual acuity reduced [Not Recovered/Not Resolved]
  - Decreased appetite [Unknown]
  - Cough [Unknown]
  - Dizziness [Unknown]
  - Sensation of foreign body [Unknown]
  - Weight decreased [Unknown]
  - Ill-defined disorder [Unknown]
  - Skin exfoliation [Unknown]
  - Ear pain [Unknown]
  - Fatigue [Unknown]
  - Dry skin [Unknown]
  - Blood potassium decreased [Unknown]
